FAERS Safety Report 7535729-X (Version None)
Quarter: 2011Q2

REPORT INFORMATION
  Report Type: 
  Country: None (occurrence: None)
  Receive Date: 20110609
  Receipt Date: 20110606
  Transmission Date: 20111010
  Serious: Yes (Other)
  Sender: FDA-Public Use
  Company Number: GB-SP-2011-01800

PATIENT
  Sex: Male

DRUGS (7)
  1. SODIUM CHLORIDE [Suspect]
     Indication: PRODUCT USED FOR UNKNOWN INDICATION
     Dosage: NOT REPORTED
     Route: 065
  2. ATORVASTATIN [Concomitant]
     Route: 048
  3. PERINDOPRIL ERBUMINE [Concomitant]
     Route: 048
  4. ASPIRIN [Concomitant]
     Route: 048
  5. LIPITOR [Concomitant]
     Route: 048
  6. IMMUCYST [Suspect]
     Indication: PRODUCT USED FOR UNKNOWN INDICATION
     Dosage: NOT REPORTED
     Route: 065
  7. TESTOSTERONE [Concomitant]
     Route: 061

REACTIONS (2)
  - DERMATITIS [None]
  - SKIN DISCOLOURATION [None]
